FAERS Safety Report 15918975 (Version 1)
Quarter: 2019Q1

REPORT INFORMATION
  Report Type: Spontaneous
  Country: CN (occurrence: CN)
  Receive Date: 20190205
  Receipt Date: 20190205
  Transmission Date: 20190417
  Serious: Yes (Life-Threatening, Hospitalization, Other)
  Sender: FDA-Public Use
  Company Number: CN-BAYER-2019-021446

PATIENT
  Age: 85 Year
  Sex: Male
  Weight: 45 kg

DRUGS (5)
  1. BIVALIRUDIN. [Suspect]
     Active Substance: BIVALIRUDIN
     Indication: ACUTE CORONARY SYNDROME
     Dosage: 0.25 G, QD
     Route: 041
     Dates: start: 20181203, end: 20181203
  2. PLAVIX [Suspect]
     Active Substance: CLOPIDOGREL BISULFATE
     Indication: ACUTE CORONARY SYNDROME
     Dosage: 75 MG, QD
     Route: 048
     Dates: start: 20181201, end: 20181203
  3. SALVIANOLATE [Suspect]
     Active Substance: HERBALS
     Indication: ACUTE CORONARY SYNDROME
     Dosage: 200 MG, QD
     Route: 041
     Dates: start: 20181201, end: 20181203
  4. NADROPARIN CALCIUM [Suspect]
     Active Substance: NADROPARIN CALCIUM
     Indication: ACUTE CORONARY SYNDROME
     Dosage: 3075 IU, BID
     Route: 058
     Dates: start: 20181201, end: 20181203
  5. BAYASPIRIN 100 MG [Suspect]
     Active Substance: ASPIRIN
     Indication: ACUTE CORONARY SYNDROME
     Dosage: 0.1 G, QD
     Route: 048
     Dates: start: 20181201, end: 20181203

REACTIONS (3)
  - Shock haemorrhagic [Unknown]
  - Gastrointestinal haemorrhage [Unknown]
  - Haematemesis [Unknown]

NARRATIVE: CASE EVENT DATE: 20181203
